FAERS Safety Report 12073219 (Version 1)
Quarter: 2016Q1

REPORT INFORMATION
  Report Type: Spontaneous
  Country: FR (occurrence: FR)
  Receive Date: 20160212
  Receipt Date: 20160212
  Transmission Date: 20160526
  Serious: Yes (Hospitalization)
  Sender: FDA-Public Use
  Company Number: FR-GE HEALTHCARE MEDICAL DIAGNOSTICS-VISP-PR-1602S-0049

PATIENT
  Age: 53 Year
  Sex: Female

DRUGS (4)
  1. SERESTA [Concomitant]
     Active Substance: OXAZEPAM
  2. VISIPAQUE [Suspect]
     Active Substance: IODIXANOL
     Indication: PRODUCT USED FOR UNKNOWN INDICATION
     Dosage: DOSE NOT REPORTED
     Route: 042
     Dates: start: 20160119, end: 20160119
  3. VISIPAQUE [Suspect]
     Active Substance: IODIXANOL
     Indication: DIAGNOSTIC PROCEDURE
  4. CELLCEPT [Concomitant]
     Active Substance: MYCOPHENOLATE MOFETIL\MYCOPHENOLATE MOFETIL HYDROCHLORIDE

REACTIONS (2)
  - Rash maculo-papular [Recovering/Resolving]
  - Pruritus [Recovering/Resolving]

NARRATIVE: CASE EVENT DATE: 20160119
